FAERS Safety Report 7396916-7 (Version None)
Quarter: 2011Q2

REPORT INFORMATION
  Report Type: 
  Country: None (occurrence: None)
  Receive Date: 20110406
  Receipt Date: 20110330
  Transmission Date: 20111010
  Serious: Yes (Other)
  Sender: FDA-Public Use
  Company Number: SG-BAYER-2011-028646

PATIENT
  Age: 52 Year
  Sex: Female

DRUGS (4)
  1. INDOMETHACIN [Suspect]
  2. ASPIRIN [Suspect]
  3. SYNFLEX [Suspect]
  4. PSEUDOEPHEDRINE HCL [Suspect]
     Route: 048

REACTIONS (1)
  - RASH [None]
